FAERS Safety Report 24708868 (Version 1)
Quarter: 2024Q4

REPORT INFORMATION
  Report Type: Spontaneous
  Country: CN (occurrence: CN)
  Receive Date: 20241207
  Receipt Date: 20241207
  Transmission Date: 20250115
  Serious: Yes (Life-Threatening, Hospitalization, Other)
  Sender: ABBVIE
  Company Number: CN-ABBVIE-6033730

PATIENT
  Age: 49 Year
  Sex: Female
  Weight: 49 kg

DRUGS (5)
  1. VENETOCLAX [Suspect]
     Active Substance: VENETOCLAX
     Indication: Chemotherapy
     Dosage: 200 MILLIGRAM
     Route: 048
     Dates: start: 20241002, end: 20241002
  2. VENETOCLAX [Suspect]
     Active Substance: VENETOCLAX
     Indication: Chemotherapy
     Dosage: 400 MILLIGRAM
     Route: 048
     Dates: start: 20241004, end: 20241010
  3. VENETOCLAX [Suspect]
     Active Substance: VENETOCLAX
     Indication: Chemotherapy
     Dosage: 100 MILLIGRAM
     Route: 048
     Dates: start: 20241001, end: 20241001
  4. DAUNORUBICIN HYDROCHLORIDE [Suspect]
     Active Substance: DAUNORUBICIN HYDROCHLORIDE
     Indication: Chemotherapy
     Dosage: 60 MILLIGRAM
     Route: 041
     Dates: start: 20241001, end: 20241003
  5. CYTARABINE [Suspect]
     Active Substance: CYTARABINE
     Indication: Chemotherapy
     Dosage: 200 MILLIGRAM
     Route: 041
     Dates: start: 20241001, end: 20241006

REACTIONS (16)
  - Myelosuppression [Recovering/Resolving]
  - Asthenia [Recovering/Resolving]
  - Pyrexia [Recovered/Resolved]
  - Faeces discoloured [Unknown]
  - Acute myeloid leukaemia [Unknown]
  - Ecchymosis [Unknown]
  - Neoplasm malignant [Unknown]
  - Platelet count decreased [Unknown]
  - Type 2 diabetes mellitus [Unknown]
  - Immunodeficiency [Unknown]
  - Fatigue [Unknown]
  - Decreased appetite [Unknown]
  - Dyspnoea [Unknown]
  - Palpitations [Unknown]
  - Petechiae [Unknown]
  - Unevaluable event [Unknown]

NARRATIVE: CASE EVENT DATE: 20240101
